FAERS Safety Report 11921977 (Version 1)
Quarter: 2016Q1

REPORT INFORMATION
  Report Type: Report from Study
  Country: CA (occurrence: CA)
  Receive Date: 20160115
  Receipt Date: 20160115
  Transmission Date: 20160526
  Serious: Yes (Hospitalization, Other)
  Sender: FDA-Public Use
  Company Number: CA-ABBVIE-16K-028-1538442-00

PATIENT
  Age: 33 Year
  Sex: Female

DRUGS (2)
  1. HUMIRA [Suspect]
     Active Substance: ADALIMUMAB
     Indication: CROHN^S DISEASE
     Route: 058
     Dates: start: 20100513, end: 2015
  2. HUMIRA [Suspect]
     Active Substance: ADALIMUMAB
     Route: 058
     Dates: start: 201512

REACTIONS (10)
  - Back pain [Recovered/Resolved]
  - Sepsis [Recovered/Resolved with Sequelae]
  - Renal failure [Recovered/Resolved]
  - Exposure during pregnancy [Unknown]
  - Uterine operation [Unknown]
  - Foetal death [Unknown]
  - Poor peripheral circulation [Recovered/Resolved with Sequelae]
  - Thrombosis [Recovered/Resolved]
  - Sepsis [Recovered/Resolved with Sequelae]
  - Neuralgia [Not Recovered/Not Resolved]

NARRATIVE: CASE EVENT DATE: 20141106
